FAERS Safety Report 18115224 (Version 2)
Quarter: 2020Q3

REPORT INFORMATION
  Report Type: Spontaneous
  Country: US (occurrence: US)
  Receive Date: 20200805
  Receipt Date: 20200810
  Transmission Date: 20201103
  Serious: No
  Sender: FDA-Public Use
  Company Number: US-ALLERGAN-2022134US

PATIENT
  Age: 23 Year
  Sex: Female

DRUGS (8)
  1. CITALOPRAM HYDROBROMIDE UNK [Suspect]
     Active Substance: CITALOPRAM HYDROBROMIDE
     Indication: PRODUCT USED FOR UNKNOWN INDICATION
     Dosage: 400 MG, QD
  2. ORILISSA [Concomitant]
     Active Substance: ELAGOLIX SODIUM
     Indication: ENDOMETRIOSIS
     Dosage: 150 MG, QD
     Dates: start: 201912
  3. CELEXA [Concomitant]
     Active Substance: CITALOPRAM HYDROBROMIDE
     Dosage: 20 MG, QD
  4. MISOPROSTOL. [Concomitant]
     Active Substance: MISOPROSTOL
     Indication: UTERINE CERVIX DILATION PROCEDURE
     Dosage: 200 MCG PRE?MED DOSE MORNING AND NIGHT BEFORE LILETTA INSERTION
  5. LILETTA [Suspect]
     Active Substance: LEVONORGESTREL
     Indication: METRORRHAGIA
  6. LILETTA [Suspect]
     Active Substance: LEVONORGESTREL
     Indication: CONTRACEPTION
     Dosage: 52 MG, SINGLE
     Route: 015
     Dates: start: 20200528, end: 20200528
  7. BACLOFEN. [Concomitant]
     Active Substance: BACLOFEN
     Indication: PELVIC PAIN
     Dosage: 500 MG AS NEEDED
  8. BACLOFEN. [Concomitant]
     Active Substance: BACLOFEN
     Indication: ENDOMETRIOSIS

REACTIONS (3)
  - Off label use [Unknown]
  - Wrong dose [Unknown]
  - Procedural pain [Recovered/Resolved]

NARRATIVE: CASE EVENT DATE: 20200528
